FAERS Safety Report 6169192-0 (Version None)
Quarter: 2009Q2

REPORT INFORMATION
  Report Type: 
  Country: None (occurrence: None)
  Receive Date: 20090424
  Receipt Date: 20090219
  Transmission Date: 20091009
  Serious: No
  Sender: FDA-Public Use
  Company Number: ALL1-2009-00452

PATIENT
  Age: 12 Year
  Sex: Female
  Weight: 40.8 kg

DRUGS (2)
  1. VYVANSE [Suspect]
     Indication: ATTENTION DEFICIT/HYPERACTIVITY DISORDER
     Dosage: MG, 1X/DAY QD, ORAL
     Route: 048
     Dates: start: 20080101, end: 20080101
  2. LAMICTAL [Concomitant]

REACTIONS (1)
  - DISTURBANCE IN ATTENTION [None]
